FAERS Safety Report 17189760 (Version 6)
Quarter: 2020Q3

REPORT INFORMATION
  Report Type: Report from Study
  Country: IT (occurrence: IT)
  Receive Date: 20191223
  Receipt Date: 20200902
  Transmission Date: 20201102
  Serious: Yes (Death, Hospitalization)
  Sender: FDA-Public Use
  Company Number: IT-ROCHE-2489290

PATIENT
  Age: 62 Year
  Sex: Male
  Weight: 82 kg

DRUGS (14)
  1. PREDNISONE. [Concomitant]
     Active Substance: PREDNISONE
     Dates: start: 20191008, end: 20191008
  2. ATEZOLIZUMAB. [Suspect]
     Active Substance: ATEZOLIZUMAB
     Indication: SMALL CELL LUNG CANCER EXTENSIVE STAGE
     Dosage: ON 08/OCT/2019, 13:33, PATIENT RECEIVED MOST RECENT DOSE OF ATEZOLIZUMAB 1200 MG PRIOR TO EVENT ONSE
     Route: 041
     Dates: start: 20190828
  3. CIPROXIN [Concomitant]
     Active Substance: CIPROFLOXACIN
     Indication: PYREXIA
     Dates: start: 20191017, end: 20191021
  4. DUOPLAVIN [Concomitant]
     Active Substance: ASPIRIN\CLOPIDOGREL
     Indication: HYPERTENSION
     Dates: start: 20170101
  5. CARBOPLATIN. [Suspect]
     Active Substance: CARBOPLATIN
     Indication: SMALL CELL LUNG CANCER EXTENSIVE STAGE
     Dosage: AUC OF 5 MG/ML/MIN?ON 05/NOV/2019, PATIENT RECEIVED MOST RECENT DOSE OF CARBOPLATIN 539 MG PRIOR TO
     Route: 042
     Dates: start: 20190828
  6. CARDIAZOL?PARACODINA [Concomitant]
     Active Substance: DIHYDROCODEINE\PENTETRAZOL
     Indication: COUGH
     Dates: start: 20190814
  7. PREDNISONE. [Concomitant]
     Active Substance: PREDNISONE
     Indication: DIARRHOEA
     Dates: start: 20190917, end: 20191019
  8. PREDNISONE. [Concomitant]
     Active Substance: PREDNISONE
     Dates: start: 20191112
  9. ETOPOSIDE. [Suspect]
     Active Substance: ETOPOSIDE
     Indication: SMALL CELL LUNG CANCER EXTENSIVE STAGE
     Dosage: ON 07/NOV/2019, MOST RECENT DOSE RECEIVED: 202 MG PRIOR TO EVENT ONSET.?DATE OF MOST RECENT DOSE OF
     Route: 042
     Dates: start: 20190828
  10. PREDNISONE. [Concomitant]
     Active Substance: PREDNISONE
     Dates: start: 20190920, end: 20190927
  11. PREDNISONE. [Concomitant]
     Active Substance: PREDNISONE
     Dates: start: 20190928, end: 20190930
  12. PREDNISONE. [Concomitant]
     Active Substance: PREDNISONE
     Dates: start: 20191001, end: 20191007
  13. PREDNISONE. [Concomitant]
     Active Substance: PREDNISONE
     Dates: start: 20191009, end: 20191013
  14. PERINDOPRIL [Concomitant]
     Active Substance: PERINDOPRIL
     Indication: HYPERTENSION
     Dates: start: 20170101

REACTIONS (3)
  - Colitis ulcerative [Not Recovered/Not Resolved]
  - Diarrhoea [Recovered/Resolved with Sequelae]
  - Atrial fibrillation [Recovered/Resolved]

NARRATIVE: CASE EVENT DATE: 20190912
